FAERS Safety Report 23197202 (Version 1)
Quarter: 2023Q4

REPORT INFORMATION
  Report Type: Spontaneous
  Country: US (occurrence: None)
  Receive Date: 20231117
  Receipt Date: 20231117
  Transmission Date: 20240109
  Serious: Yes (Hospitalization)
  Sender: FDA-Public Use
  Company Number: None

PATIENT
  Age: 55 Year
  Sex: Male
  Weight: 200.49 kg

DRUGS (1)
  1. SULFUR HEXAFLUORIDE [Suspect]
     Active Substance: SULFUR HEXAFLUORIDE
     Dosage: FREQUENCY : ONCE;?
     Route: 042

REACTIONS (3)
  - Dizziness [None]
  - Unresponsive to stimuli [None]
  - Contrast media reaction [None]

NARRATIVE: CASE EVENT DATE: 20231116
